FAERS Safety Report 24199122 (Version 1)
Quarter: 2024Q3

REPORT INFORMATION
  Report Type: Report from Study
  Country: PE (occurrence: PE)
  Receive Date: 20240812
  Receipt Date: 20240812
  Transmission Date: 20241017
  Serious: Yes (Other)
  Sender: ROCHE
  Company Number: PE-ROCHE-10000048033

PATIENT
  Age: 89 Year
  Sex: Female

DRUGS (2)
  1. MABTHERA [Suspect]
     Active Substance: RITUXIMAB
     Indication: Non-Hodgkin^s lymphoma
     Route: 058
  2. MABTHERA [Suspect]
     Active Substance: RITUXIMAB
     Indication: Non-Hodgkin^s lymphoma
     Route: 042

REACTIONS (2)
  - Neoplasm [Unknown]
  - Peripheral swelling [Unknown]
